FAERS Safety Report 23521995 (Version 1)
Quarter: 2024Q1

REPORT INFORMATION
  Report Type: 
  Country: None (occurrence: None)
  Receive Date: 20240214
  Receipt Date: 20240214
  Transmission Date: 20240409
  Serious: No
  Sender: FDA-Public Use
  Company Number: JP-CHUGAI-2024003825

PATIENT

DRUGS (1)
  1. ACTEMRA [Suspect]
     Active Substance: TOCILIZUMAB
     Dosage: UNK

REACTIONS (5)
  - Platelet count decreased [None]
  - Hepatic function abnormal [None]
  - Pyrexia [None]
  - Chills [None]
  - Blood fibrinogen decreased [None]
